FAERS Safety Report 5387502-9 (Version None)
Quarter: 2007Q3

REPORT INFORMATION
  Report Type: 
  Country: None (occurrence: None)
  Receive Date: 20070716
  Receipt Date: 20070706
  Transmission Date: 20080115
  Serious: Yes (Hospitalization)
  Sender: FDA-Public Use
  Company Number: PT-AMGEN-UK206115

PATIENT
  Sex: Female
  Weight: 60 kg

DRUGS (8)
  1. NEULASTA [Suspect]
     Indication: CHEMOTHERAPY
     Route: 058
     Dates: start: 20061117, end: 20061221
  2. NEUPOGEN [Concomitant]
     Route: 065
     Dates: start: 20061030
  3. FLUOROURACIL [Concomitant]
     Route: 065
     Dates: start: 20061026
  4. DOXORUBICIN HYDROCHLORIDE [Concomitant]
     Route: 065
     Dates: start: 20061026
  5. CYCLOPHOSPHAMIDE [Concomitant]
     Route: 065
     Dates: start: 20061026
  6. ACECLOFENAC [Concomitant]
     Route: 065
  7. THIOCHOLCHICOSIDE [Concomitant]
     Route: 065
  8. NSAIDS [Concomitant]
     Route: 065

REACTIONS (3)
  - BONE MARROW FAILURE [None]
  - HAEMOSIDEROSIS [None]
  - NO THERAPEUTIC RESPONSE [None]
